FAERS Safety Report 15539082 (Version 4)
Quarter: 2019Q3

REPORT INFORMATION
  Report Type: Spontaneous
  Country: US (occurrence: US)
  Receive Date: 20181022
  Receipt Date: 20190724
  Transmission Date: 20191004
  Serious: Yes (Hospitalization)
  Sender: FDA-Public Use
  Company Number: US-PFIZER INC-2018423978

PATIENT
  Age: 71 Year
  Sex: Female

DRUGS (1)
  1. XELJANZ XR [Suspect]
     Active Substance: TOFACITINIB CITRATE
     Dosage: 11 MG, UNK
     Route: 048

REACTIONS (9)
  - Sensitivity to weather change [Unknown]
  - Gait disturbance [Unknown]
  - Pneumonia [Unknown]
  - Pain [Unknown]
  - Cardiac failure congestive [Unknown]
  - Atrial fibrillation [Unknown]
  - Joint lock [Unknown]
  - Arthralgia [Unknown]
  - Nail disorder [Unknown]

NARRATIVE: CASE EVENT DATE: 2019
